FAERS Safety Report 10871973 (Version 1)
Quarter: 2015Q1

REPORT INFORMATION
  Report Type: Spontaneous
  Country: US (occurrence: None)
  Receive Date: 20150223
  Receipt Date: 20150223
  Transmission Date: 20150721
  Serious: Yes (Disabling)
  Sender: FDA-Public Use
  Company Number: None

PATIENT
  Age: 4 Month
  Sex: Female
  Weight: 43.55 kg

DRUGS (8)
  1. REZITRIPTAN (MAXALT) [Concomitant]
  2. ZOFRAN [Concomitant]
     Active Substance: ONDANSETRON HYDROCHLORIDE
  3. TYLENOL [Concomitant]
     Active Substance: ACETAMINOPHEN
  4. LORAZAPAM [Concomitant]
     Active Substance: LORAZEPAM
  5. KENALOG [Suspect]
     Active Substance: TRIAMCINOLONE ACETONIDE
     Indication: MUSCULOSKELETAL PAIN
     Dosage: ONE SYRINGE OF 80 MG  ONE TIMES INJECTION GIVEN INTO/UNDER THE SKIN
  6. ADVIL [Concomitant]
     Active Substance: IBUPROFEN
  7. MIRALAX [Concomitant]
     Active Substance: POLYETHYLENE GLYCOL 3350
  8. VITAMIN D 2000 [Concomitant]

REACTIONS (16)
  - Menorrhagia [None]
  - Memory impairment [None]
  - Dyspnoea [None]
  - Dry mouth [None]
  - Vision blurred [None]
  - Hair growth abnormal [None]
  - Weight decreased [None]
  - Neuralgia [None]
  - Palpitations [None]
  - Dizziness [None]
  - Urine output increased [None]
  - Fatigue [None]
  - Confusional state [None]
  - Hypoaesthesia [None]
  - Impaired work ability [None]
  - Hypoaesthesia oral [None]

NARRATIVE: CASE EVENT DATE: 20141028
